FAERS Safety Report 7865931-9 (Version None)
Quarter: 2011Q4

REPORT INFORMATION
  Report Type: 
  Country: None (occurrence: None)
  Receive Date: 20111026
  Receipt Date: 20111010
  Transmission Date: 20120403
  Serious: Yes (Hospitalization)
  Sender: FDA-Public Use
  Company Number: THQ2011A06518

PATIENT
  Age: 76 Year
  Sex: Female

DRUGS (2)
  1. PRETERAX (INDAPAMIDE, PERINDOPRIL ERBUMINE) [Concomitant]
  2. COMPETACT (PIOGLITAZONE HYDROCHLORIDE, METFORMIN HYDROCHLORIDE) [Suspect]
     Indication: TYPE 2 DIABETES MELLITUS
     Dosage: PIOGLITAZONE HYDROCHLORIDE 15 (850 MG, 2 IN 1D) PER ORAL
     Route: 048
     Dates: start: 20100101, end: 20110901

REACTIONS (1)
  - BLADDER CANCER [None]
